FAERS Safety Report 8620726-3 (Version None)
Quarter: 2012Q3

REPORT INFORMATION
  Report Type: 
  Country: None (occurrence: None)
  Receive Date: 20120824
  Receipt Date: 20120810
  Transmission Date: 20120928
  Serious: Yes (Other)
  Sender: FDA-Public Use
  Company Number: JP-VERTEX PHARMACEUTICAL INC.-AE-2012-009272

PATIENT
  Age: 61 Year
  Sex: Male

DRUGS (11)
  1. ACETAMINOPHEN [Concomitant]
     Dosage: 600 MG, QD
     Route: 048
  2. VX-950 [Suspect]
     Indication: HEPATITIS C
     Dosage: 1500 MG, UNK
     Route: 048
     Dates: start: 20120509, end: 20120801
  3. RIBAVIRIN [Suspect]
     Dosage: 600 MG, QD
     Route: 048
     Dates: start: 20120605, end: 20120801
  4. PEGINTERFERON ALFA-2B [Suspect]
     Indication: HEPATITIS C
     Route: 058
     Dates: start: 20120509
  5. RIBAVIRIN [Suspect]
     Indication: HEPATITIS C
     Dosage: 800 MG, UNK
     Route: 048
     Dates: start: 20120509, end: 20120604
  6. MAGMITT [Concomitant]
     Dosage: 990 MG, PRN
     Route: 048
     Dates: start: 20120628
  7. PEGINTERFERON ALFA-2B [Suspect]
     Dosage: 60 A?G/KG, UNK
     Route: 058
     Dates: start: 20120621, end: 20120726
  8. RIBAVIRIN [Suspect]
     Dosage: 200 MG, QD
     Route: 048
     Dates: start: 20120802, end: 20120807
  9. EPINASTINE HYDROCHLORIDE [Concomitant]
     Dosage: 20 MG, UNK
     Route: 048
     Dates: start: 20120501
  10. GASTER                             /00661201/ [Concomitant]
     Dosage: 20 MG, QD
     Route: 048
     Dates: start: 20120501
  11. ACETAMINOPHEN [Concomitant]
     Dosage: 600 MG, PRN
     Route: 048
     Dates: start: 20120509

REACTIONS (1)
  - RETINOPATHY [None]
